FAERS Safety Report 14145464 (Version 1)
Quarter: 2017Q4

REPORT INFORMATION
  Report Type: Spontaneous
  Country: JP (occurrence: JP)
  Receive Date: 20171031
  Receipt Date: 20171031
  Transmission Date: 20180321
  Serious: Yes (Other)
  Sender: FDA-Public Use
  Company Number: JP-PFIZER INC-2017461693

PATIENT
  Age: 66 Year
  Sex: Female

DRUGS (2)
  1. ACYCLOVIR /00587301/ [Concomitant]
     Active Substance: ACYCLOVIR
     Indication: HERPES ZOSTER
     Dosage: UNK
     Route: 042
     Dates: start: 201205
  2. TOFACITINIB CITRATE [Suspect]
     Active Substance: TOFACITINIB CITRATE
     Indication: RHEUMATOID ARTHRITIS
     Dosage: 5 MG, DAILY
     Dates: start: 200912

REACTIONS (1)
  - Neuroendocrine carcinoma of the skin [Recovering/Resolving]
